FAERS Safety Report 25629402 (Version 2)
Quarter: 2025Q3

REPORT INFORMATION
  Report Type: Spontaneous
  Country: CN (occurrence: CN)
  Receive Date: 20250731
  Receipt Date: 20250909
  Transmission Date: 20251020
  Serious: Yes (Other)
  Sender: PFIZER
  Company Number: CN-PFIZER INC-PV202500085966

PATIENT
  Age: 27 Year
  Sex: Female

DRUGS (3)
  1. BESPONSA [Suspect]
     Active Substance: INOTUZUMAB OZOGAMICIN
  2. BESPONSA [Suspect]
     Active Substance: INOTUZUMAB OZOGAMICIN
  3. BESPONSA [Suspect]
     Active Substance: INOTUZUMAB OZOGAMICIN

REACTIONS (12)
  - Hydrocholecystis [Unknown]
  - Myelosuppression [Unknown]
  - Abdominal rebound tenderness [Recovering/Resolving]
  - Lymphadenopathy [Unknown]
  - Tenderness [Recovering/Resolving]
  - Abdominal tenderness [Recovering/Resolving]
  - Abdominal pain upper [Recovering/Resolving]
  - White blood cell count decreased [Not Recovered/Not Resolved]
  - Platelet count decreased [Not Recovered/Not Resolved]
  - Pyrexia [Recovered/Resolved]
  - Off label use [Unknown]
  - Product use issue [Unknown]

NARRATIVE: CASE EVENT DATE: 20250101
